FAERS Safety Report 8829647 (Version 1)
Quarter: 2012Q4

REPORT INFORMATION
  Report Type: 
  Country: US (occurrence: US)
  Receive Date: 20121008
  Receipt Date: 20121008
  Transmission Date: 20130627
  Serious: Yes (Death)
  Sender: FDA-Public Use
  Company Number: US-ROCHE-1123217

PATIENT
  Sex: Male

DRUGS (3)
  1. RITUXAN [Suspect]
     Indication: JUVENILE ARTHRITIS
     Route: 065
  2. RITUXAN [Suspect]
     Indication: JUVENILE ARTHRITIS
  3. RITUXAN [Suspect]
     Indication: OFF LABEL USE

REACTIONS (2)
  - Cardiomyopathy [Fatal]
  - Sepsis [Fatal]
